FAERS Safety Report 8360152-8 (Version None)
Quarter: 2012Q2

REPORT INFORMATION
  Report Type: 
  Country: None (occurrence: None)
  Receive Date: 20120515
  Receipt Date: 20110620
  Transmission Date: 20120825
  Serious: No
  Sender: FDA-Public Use
  Company Number: US-ALEXION-A201100910

PATIENT
  Sex: Male

DRUGS (23)
  1. GLIPIZIDE [Concomitant]
     Dosage: 10 MG, QD
     Route: 048
  2. VITAMIN E [Concomitant]
     Dosage: 2 TABLETS, QD
  3. CALCIUM CARBONATE [Concomitant]
     Dosage: 3 TABLETS, HS PRN
  4. SEA-OMEGA [Concomitant]
     Dosage: 3600 QAM AND 2400 QPM
  5. FLUTICASONE PROPIONATE [Concomitant]
     Dosage: UNK, PRN
  6. ACYCLOVIR [Concomitant]
     Dosage: 800 MG, Q12H
     Route: 048
  7. PREDNISONE [Concomitant]
     Dosage: 50 MG, 12H PRIOR TO TREATMENT AND ONE HOUR PRIOR TO TREATMENT
  8. MAGNESIUM [Concomitant]
     Dosage: 250 MG, BID
  9. SOLIRIS [Suspect]
     Indication: PAROXYSMAL NOCTURNAL HAEMOGLOBINURIA
     Dosage: 600 MG, UNK
     Route: 042
     Dates: start: 20100125
  10. AMLODIPINE BESYLATE [Concomitant]
     Dosage: 5 MG, BID
     Route: 048
  11. PREVACID [Concomitant]
     Dosage: 15 MG, PRN
  12. GENGRAF [Concomitant]
     Dosage: 125 MG, BID
     Route: 048
  13. ALLOPURINOL [Concomitant]
     Dosage: 100 MG, QPM
  14. FOLIC ACID [Concomitant]
     Dosage: 1 MG, QD
     Route: 048
  15. BENADRYL [Concomitant]
     Dosage: 25 MG, AS DIRECTED
  16. MAGIC MOUTHWASH PLUS NYSTATIN [Concomitant]
     Dosage: 10 ML, Q 2-3 HRS PRN
  17. BENADRYL [Concomitant]
     Dosage: 25 MG, BEFORE SOLIRIS INFUSION
  18. TESTOSTERONE CYPIONATE [Concomitant]
     Dosage: 100 MG, Q MONTH
     Route: 030
  19. SOLIRIS [Suspect]
     Dosage: 900 MG, UNK
     Route: 042
     Dates: start: 20100223
  20. PENTAM [Concomitant]
     Dosage: UNK, 1ST TUESDAY EVERY MONTH
  21. SOLU-CORTEF [Concomitant]
     Dosage: 50 MG, EVERY OTHER TUESDAY
     Route: 042
  22. FLOMAX [Concomitant]
     Dosage: 0.4 MG, QD
  23. PREDNISONE [Concomitant]
     Dosage: 20 MG, 24 HR AFTER INFUSION AND 10 MG 36 HRS AFTER INFUSION

REACTIONS (5)
  - GINGIVAL PAIN [None]
  - CATARACT [None]
  - OESOPHAGITIS [None]
  - ASTHENIA [None]
  - GINGIVAL SWELLING [None]
